FAERS Safety Report 7556569-1 (Version None)
Quarter: 2011Q2

REPORT INFORMATION
  Report Type: 
  Country: None (occurrence: None)
  Receive Date: 20110610
  Receipt Date: 20110530
  Transmission Date: 20111010
  Serious: Yes (Other)
  Sender: FDA-Public Use
  Company Number: B0724284A

PATIENT
  Age: 70 Year
  Sex: Female

DRUGS (1)
  1. CEFUROXIME SODIUM [Suspect]
     Dosage: 62.5 MG

REACTIONS (5)
  - CYSTOID MACULAR OEDEMA [None]
  - INCORRECT DOSE ADMINISTERED [None]
  - MACULAR ISCHAEMIA [None]
  - WRONG DRUG ADMINISTERED [None]
  - CIRCUMSTANCE OR INFORMATION CAPABLE OF LEADING TO MEDICATION ERROR [None]
